FAERS Safety Report 4819509-1 (Version None)
Quarter: 2005Q4

REPORT INFORMATION
  Report Type: 
  Country: None (occurrence: None)
  Receive Date: 20051102
  Receipt Date: 20051102
  Transmission Date: 20060501
  Serious: Yes (Life-Threatening)
  Sender: FDA-Public Use
  Company Number: None

PATIENT
  Age: 39 Year
  Sex: Female
  Weight: 69.8539 kg

DRUGS (1)
  1. PROTAMINE SULFATE [Suspect]
     Indication: COAGULOPATHY
     Dosage: IV X 1
     Route: 042

REACTIONS (3)
  - BRONCHOSPASM [None]
  - DYSPNOEA [None]
  - POST PROCEDURAL COMPLICATION [None]
